FAERS Safety Report 6702546-X (Version None)
Quarter: 2010Q2

REPORT INFORMATION
  Report Type: 
  Country: None (occurrence: None)
  Receive Date: 20100429
  Receipt Date: 20100416
  Transmission Date: 20101027
  Serious: Yes (Hospitalization, Other)
  Sender: FDA-Public Use
  Company Number: US-ELI_LILLY_AND_COMPANY-US201004005467

PATIENT
  Age: 75 Year
  Sex: Male

DRUGS (3)
  1. EFFIENT [Suspect]
     Indication: PERCUTANEOUS CORONARY INTERVENTION
     Dosage: 1 D/F, UNKNOWN
  2. EFFIENT [Suspect]
     Dosage: 1 D/F, UNKNOWN
  3. ANTIHYPERTENSIVES [Concomitant]

REACTIONS (2)
  - ARTERIAL STENT INSERTION [None]
  - CORONARY ARTERY DISEASE [None]
